FAERS Safety Report 20682128 (Version 1)
Quarter: 2022Q2

REPORT INFORMATION
  Report Type: Report from Study
  Country: US (occurrence: US)
  Receive Date: 20220407
  Receipt Date: 20220407
  Transmission Date: 20220721
  Serious: Yes (Death)
  Sender: FDA-Public Use
  Company Number: US-HELSINN-2021US023592

PATIENT
  Sex: Male
  Weight: 121.54 kg

DRUGS (4)
  1. TRUSELTIQ [Suspect]
     Active Substance: INFIGRATINIB
     Indication: Hepatic cancer
     Dosage: 125 MILLIGRAM, QD, 21 DAYS ON 7 OFF
     Route: 048
     Dates: start: 202109, end: 2021
  2. TRUSELTIQ [Suspect]
     Active Substance: INFIGRATINIB
     Dosage: 75 MG, 75MG QD EVERY MORNING FOR 2 DAYS (3 WEEK ON) AND 1 WEEK OFF
     Route: 048
  3. TRUSELTIQ [Suspect]
     Active Substance: INFIGRATINIB
     Dosage: 75 MG, 75MG QD EVERY MORNING FOR 2 DAYS (3 WEEK ON) AND 1 WEEK OFF
     Route: 048
     Dates: end: 20220321
  4. MAGNESIUM OXIDE [Concomitant]
     Active Substance: MAGNESIUM OXIDE
     Dosage: 400MG TAKEN TWICE DAILY

REACTIONS (9)
  - Death [Fatal]
  - Thirst [Unknown]
  - Blood magnesium increased [Recovered/Resolved]
  - Blood potassium increased [Recovered/Resolved]
  - Blood phosphorus increased [Recovered/Resolved]
  - Dry skin [Unknown]
  - Decreased appetite [Unknown]
  - Nausea [Unknown]
  - Fatigue [Unknown]

NARRATIVE: CASE EVENT DATE: 20210101
